FAERS Safety Report 6040055-4 (Version None)
Quarter: 2009Q1

REPORT INFORMATION
  Report Type: 
  Country: None (occurrence: None)
  Receive Date: 20090116
  Receipt Date: 20071128
  Transmission Date: 20090719
  Serious: No
  Sender: FDA-Public Use
  Company Number: US-BRISTOL-MYERS SQUIBB COMPANY-13997283

PATIENT
  Age: 57 Year
  Weight: 112 kg

DRUGS (1)
  1. ABILIFY [Suspect]
     Indication: DEPRESSION
     Dosage: STARTING DOSE WAS 10 MG DAILY IN JUL-2007 WHICH WAS INCREASED TO 20MG DAILY IN SEP-2007.
     Dates: start: 20070701, end: 20071001

REACTIONS (1)
  - TREMOR [None]
